FAERS Safety Report 23099503 (Version 1)
Quarter: 2023Q4

REPORT INFORMATION
  Report Type: Spontaneous
  Country: US (occurrence: US)
  Receive Date: 20231024
  Receipt Date: 20231024
  Transmission Date: 20240110
  Serious: Yes (Hospitalization)
  Sender: FDA-Public Use
  Company Number: US-JAZZ PHARMACEUTICALS-2023-US-021373

PATIENT
  Sex: Female

DRUGS (3)
  1. EPIDIOLEX [Suspect]
     Active Substance: CANNABIDIOL
     Indication: Petit mal epilepsy
  2. ONFI [Suspect]
     Active Substance: CLOBAZAM
     Indication: Seizure
  3. XCOPRI [Suspect]
     Active Substance: CENOBAMATE
     Indication: Seizure

REACTIONS (2)
  - Hospitalisation [Unknown]
  - Somnolence [Unknown]
